FAERS Safety Report 4700930-7 (Version None)
Quarter: 2005Q2

REPORT INFORMATION
  Report Type: 
  Country: None (occurrence: None)
  Receive Date: 20050624
  Receipt Date: 20050610
  Transmission Date: 20051028
  Serious: Yes (Hospitalization)
  Sender: FDA-Public Use
  Company Number: 2005001117

PATIENT
  Age: 52 Year
  Sex: Male

DRUGS (1)
  1. TARCEVA [Suspect]
     Indication: PANCREATIC CARCINOMA METASTATIC
     Dosage: 150 MG (PO OD), ORAL
     Route: 048
     Dates: start: 20050519, end: 20050530

REACTIONS (6)
  - DEEP VEIN THROMBOSIS [None]
  - GASTRIC BYPASS [None]
  - NAUSEA [None]
  - OBSTRUCTION [None]
  - POST PROCEDURAL COMPLICATION [None]
  - VOMITING [None]
